FAERS Safety Report 17159027 (Version 1)
Quarter: 2019Q4

REPORT INFORMATION
  Report Type: Spontaneous
  Country: AT (occurrence: AT)
  Receive Date: 20191214
  Receipt Date: 20191214
  Transmission Date: 20200122
  Serious: Yes (Disabling)
  Sender: FDA-Public Use
  Company Number: None

PATIENT
  Age: 29 Year
  Sex: Female
  Weight: 53 kg

DRUGS (4)
  1. PLASIL [Suspect]
     Active Substance: METOCLOPRAMIDE HYDROCHLORIDE
     Indication: VOMITING
     Dosage: ?          QUANTITY:24 TABLET(S);?
     Route: 048
     Dates: start: 20191213, end: 20191213
  2. PASPERTIN [Concomitant]
  3. PLASIL [Suspect]
     Active Substance: METOCLOPRAMIDE HYDROCHLORIDE
     Indication: NAUSEA
     Dosage: ?          QUANTITY:24 TABLET(S);?
     Route: 048
     Dates: start: 20191213, end: 20191213
  4. NORMHYDRAL LSL PLV 13 [Concomitant]

REACTIONS (3)
  - Vertigo [None]
  - Hallucination, visual [None]
  - Derealisation [None]

NARRATIVE: CASE EVENT DATE: 20191213
